FAERS Safety Report 20557286 (Version 2)
Quarter: 2022Q2

REPORT INFORMATION
  Report Type: Spontaneous
  Country: US (occurrence: US)
  Receive Date: 20220307
  Receipt Date: 20220414
  Transmission Date: 20220721
  Serious: No
  Sender: FDA-Public Use
  Company Number: US-PFIZER INC-202200205646

PATIENT
  Age: 39 Year
  Sex: Female

DRUGS (2)
  1. SOMAVERT [Suspect]
     Active Substance: PEGVISOMANT
     Indication: Pituitary tumour
     Dosage: INJECTED INTO STOMACH AREA
     Dates: start: 20220202
  2. SOMAVERT [Suspect]
     Active Substance: PEGVISOMANT
     Indication: Hypopituitarism

REACTIONS (3)
  - Device use issue [Unknown]
  - Wrong technique in device usage process [Unknown]
  - Off label use [Unknown]

NARRATIVE: CASE EVENT DATE: 20220202
